FAERS Safety Report 24326910 (Version 1)
Quarter: 2024Q3

REPORT INFORMATION
  Report Type: Report from Study
  Country: CN (occurrence: CN)
  Receive Date: 20240917
  Receipt Date: 20240917
  Transmission Date: 20241017
  Serious: Yes (Death, Hospitalization)
  Sender: ROCHE
  Company Number: CN-ROCHE-10000055746

PATIENT
  Age: 46 Year
  Sex: Female

DRUGS (1)
  1. COLUMVI [Suspect]
     Active Substance: GLOFITAMAB-GXBM
     Indication: Diffuse large B-cell lymphoma
     Route: 042
     Dates: start: 20240725

REACTIONS (6)
  - Nasopharyngitis [Unknown]
  - Pyrexia [Unknown]
  - Pneumonia [Unknown]
  - Speech disorder [Unknown]
  - Dyspnoea [Unknown]
  - Respiratory failure [Fatal]
